FAERS Safety Report 6220254-9 (Version None)
Quarter: 2009Q2

REPORT INFORMATION
  Report Type: 
  Country: None (occurrence: None)
  Receive Date: 20090605
  Receipt Date: 20090526
  Transmission Date: 20091009
  Serious: Yes (Life-Threatening, Hospitalization)
  Sender: FDA-Public Use
  Company Number: ADE2009-0639

PATIENT
  Age: 71 Year
  Sex: Female

DRUGS (7)
  1. PAROXETINE HCL [Suspect]
     Indication: DEPRESSION
     Dosage: 60MG - DAILY - UNK
     Dates: start: 20060718
  2. DILTIAZEM [Concomitant]
  3. TRIMETAZIDINE [Concomitant]
  4. LYSINE ACETYLSALICYLATE [Concomitant]
  5. ROSUVASTERINE [Concomitant]
  6. TOPICAL LATANOPROST [Concomitant]
  7. ALPRAZOLAM [Concomitant]

REACTIONS (8)
  - ALANINE AMINOTRANSFERASE INCREASED [None]
  - BODY TEMPERATURE INCREASED [None]
  - CYTOLYTIC HEPATITIS [None]
  - GAMMA-GLUTAMYLTRANSFERASE INCREASED [None]
  - KLEBSIELLA INFECTION [None]
  - MORGANELLA INFECTION [None]
  - SKIN HYPERPIGMENTATION [None]
  - TOXIC EPIDERMAL NECROLYSIS [None]
